FAERS Safety Report 11360859 (Version 5)
Quarter: 2015Q4

REPORT INFORMATION
  Report Type: Spontaneous
  Country: AR (occurrence: AR)
  Receive Date: 20150810
  Receipt Date: 20151106
  Transmission Date: 20160304
  Serious: Yes (Death, Hospitalization)
  Sender: FDA-Public Use
  Company Number: AR-PFIZER INC-2015254487

PATIENT
  Age: 55 Year
  Sex: Male

DRUGS (2)
  1. INLYTA [Suspect]
     Active Substance: AXITINIB
     Indication: RENAL CELL CARCINOMA
     Dosage: 5 MG, DAILY
     Dates: start: 20150305, end: 20150721
  2. INLYTA [Suspect]
     Active Substance: AXITINIB
     Dosage: 5 MG, DAILY
     Dates: start: 20150904, end: 20151005

REACTIONS (18)
  - Red blood cell count increased [Not Recovered/Not Resolved]
  - Nausea [Recovered/Resolved]
  - Renal cell carcinoma [Unknown]
  - Decreased appetite [Not Recovered/Not Resolved]
  - Fatigue [Not Recovered/Not Resolved]
  - Headache [Not Recovered/Not Resolved]
  - Dermatitis allergic [Not Recovered/Not Resolved]
  - Pain in extremity [Not Recovered/Not Resolved]
  - Pericardial effusion [Recovered/Resolved]
  - Cough [Unknown]
  - Herpes zoster [Not Recovered/Not Resolved]
  - Disease progression [Unknown]
  - Cardiogenic shock [Fatal]
  - Decreased immune responsiveness [Not Recovered/Not Resolved]
  - Hypophagia [Unknown]
  - Disorientation [Unknown]
  - Tachycardia [Unknown]
  - Dyspnoea [Not Recovered/Not Resolved]

NARRATIVE: CASE EVENT DATE: 201507
